FAERS Safety Report 13962216 (Version 1)
Quarter: 2017Q3

REPORT INFORMATION
  Report Type: Report from Study
  Country: US (occurrence: US)
  Receive Date: 20170912
  Receipt Date: 20170912
  Transmission Date: 20171128
  Serious: Yes (Other)
  Sender: FDA-Public Use
  Company Number: US-JAZZ-2017-US-011672

PATIENT
  Sex: Female

DRUGS (2)
  1. XYREM [Suspect]
     Active Substance: SODIUM OXYBATE
     Indication: NARCOLEPSY
     Dosage: 4.5 G, BID
     Route: 048
     Dates: start: 201105, end: 2011
  2. ZANAFLEX [Suspect]
     Active Substance: TIZANIDINE HYDROCHLORIDE
     Indication: PRODUCT USED FOR UNKNOWN INDICATION

REACTIONS (16)
  - Bipolar disorder [Recovering/Resolving]
  - Borderline personality disorder [Unknown]
  - Hypertension [Unknown]
  - Therapeutic response unexpected [Unknown]
  - Cluster headache [Unknown]
  - Constipation [Unknown]
  - Pre-existing condition improved [Unknown]
  - Sleep apnoea syndrome [Unknown]
  - Wrong technique in product usage process [Unknown]
  - Irritable bowel syndrome [Unknown]
  - Post-traumatic stress disorder [Unknown]
  - Anxiety [Unknown]
  - Hysterectomy [Unknown]
  - Akathisia [Recovering/Resolving]
  - Feeling drunk [Unknown]
  - Depression [Recovering/Resolving]
